FAERS Safety Report 6081353-8 (Version None)
Quarter: 2009Q1

REPORT INFORMATION
  Report Type: 
  Country: None (occurrence: None)
  Receive Date: 20090218
  Receipt Date: 20081205
  Transmission Date: 20090719
  Serious: Yes (Other)
  Sender: FDA-Public Use
  Company Number: AU-JNJFOC-20081201428

PATIENT
  Sex: Male

DRUGS (2)
  1. CONCERTA [Suspect]
     Indication: DRUG USE FOR UNKNOWN INDICATION
     Route: 048
  2. NULYTELY [Concomitant]
     Indication: CONSTIPATION
     Dosage: 2 SACHETS DAILY
     Route: 065

REACTIONS (2)
  - AUTISM [None]
  - THERAPEUTIC RESPONSE DECREASED [None]
